FAERS Safety Report 19778406 (Version 2)
Quarter: 2021Q3

REPORT INFORMATION
  Report Type: Spontaneous
  Country: US (occurrence: US)
  Receive Date: 20210902
  Receipt Date: 20210902
  Transmission Date: 20211014
  Serious: Yes (Other)
  Sender: FDA-Public Use
  Company Number: US-SPECGX-T202102012

PATIENT
  Sex: Male

DRUGS (3)
  1. OXYCODONE/ACETAMINOPHEN [Suspect]
     Active Substance: ACETAMINOPHEN\OXYCODONE HYDROCHLORIDE
     Indication: PAIN
     Dosage: 1 DOSAGE FORM, Q8H
     Route: 065
     Dates: start: 20130628, end: 2019
  2. HEROIN [Suspect]
     Active Substance: DIAMORPHINE
     Indication: PRODUCT USED FOR UNKNOWN INDICATION
     Dosage: UNK
     Route: 065
  3. HYDROCODONE/ACETAMINOPHEN [Suspect]
     Active Substance: ACETAMINOPHEN\HYDROCODONE
     Indication: PAIN
     Dosage: 1 DOSAGE FORM, Q4H
     Route: 065
     Dates: start: 20110623

REACTIONS (8)
  - Hepatitis C [Unknown]
  - Decreased appetite [Unknown]
  - Depression [Unknown]
  - Overdose [Recovering/Resolving]
  - Drug dependence [Unknown]
  - Withdrawal syndrome [Unknown]
  - Scar [Unknown]
  - Anxiety [Unknown]
